FAERS Safety Report 5259824-3 (Version None)
Quarter: 2007Q1

REPORT INFORMATION
  Report Type: 
  Country: None (occurrence: None)
  Receive Date: 20061117
  Receipt Date: 20060705
  Transmission Date: 20070707
  Serious: Yes (Other)
  Sender: FDA-Public Use
  Company Number: US-JNJFOC-20060603306

PATIENT
  Age: 71 Year
  Sex: Male

DRUGS (1)
  1. LEVAQUIN [Suspect]
     Indication: URINARY TRACT INFECTION
     Dosage: 500 MG, ORAL
     Route: 048
     Dates: start: 20060501

REACTIONS (2)
  - TENDON RUPTURE [None]
  - TENDONITIS [None]
